FAERS Safety Report 23516148 (Version 1)
Quarter: 2024Q1

REPORT INFORMATION
  Report Type: Report from Study
  Country: US (occurrence: US)
  Receive Date: 20240213
  Receipt Date: 20240213
  Transmission Date: 20240410
  Serious: Yes (Other)
  Sender: FDA-Public Use
  Company Number: US-JNJFOC-20240210575

PATIENT
  Sex: Male

DRUGS (5)
  1. APALUTAMIDE [Suspect]
     Active Substance: APALUTAMIDE
     Indication: Prostate cancer
     Route: 048
  2. ABIRATERONE ACETATE [Suspect]
     Active Substance: ABIRATERONE ACETATE
     Indication: Prostate cancer
     Route: 048
  3. RELUGOLIX [Suspect]
     Active Substance: RELUGOLIX
     Indication: Prostate cancer
  4. DAROLUTAMIDE [Suspect]
     Active Substance: DAROLUTAMIDE
     Indication: Prostate cancer
  5. ENZALUTAMIDE [Suspect]
     Active Substance: ENZALUTAMIDE
     Indication: Prostate cancer

REACTIONS (4)
  - Myocardial infarction [Unknown]
  - Cardiac failure congestive [Unknown]
  - Fatigue [Unknown]
  - Liver function test increased [Unknown]
